FAERS Safety Report 6234014-6 (Version None)
Quarter: 2009Q2

REPORT INFORMATION
  Report Type: 
  Country: None (occurrence: None)
  Receive Date: 20090618
  Receipt Date: 20090608
  Transmission Date: 20091009
  Serious: Yes (Hospitalization)
  Sender: FDA-Public Use
  Company Number: US-BIOGENIDEC-2009BI004986

PATIENT
  Age: 56 Year
  Sex: Female

DRUGS (5)
  1. AVONEX [Suspect]
     Indication: MULTIPLE SCLEROSIS
     Route: 030
  2. AZITHROMYCIN [Concomitant]
     Indication: PNEUMONIA
  3. AZITHROMYCIN [Concomitant]
     Indication: PLEURISY
  4. CEFUROXIME [Concomitant]
     Indication: PNEUMONIA
  5. CEFUROXIME [Concomitant]
     Indication: PLEURISY

REACTIONS (4)
  - DEHYDRATION [None]
  - PLEURISY [None]
  - PNEUMONIA [None]
  - PYREXIA [None]
